FAERS Safety Report 19608151 (Version 1)
Quarter: 2021Q3

REPORT INFORMATION
  Report Type: Spontaneous
  Country: JP (occurrence: JP)
  Receive Date: 20210726
  Receipt Date: 20210726
  Transmission Date: 20211014
  Serious: Yes (Hospitalization)
  Sender: FDA-Public Use
  Company Number: JP-NOVOPROD-816780

PATIENT
  Age: 87 Year
  Sex: Female
  Weight: 41 kg

DRUGS (2)
  1. TRESIBA [Suspect]
     Active Substance: INSULIN DEGLUDEC
     Indication: TYPE 2 DIABETES MELLITUS
     Dosage: UNK
     Route: 058
  2. TRESIBA [Suspect]
     Active Substance: INSULIN DEGLUDEC
     Dosage: UNK(DOSE INCREASED)
     Route: 058

REACTIONS (4)
  - Arterial occlusive disease [Unknown]
  - Hypoglycaemic coma [Unknown]
  - Atrial tachycardia [Unknown]
  - Hypoglycaemic encephalopathy [Unknown]
